FAERS Safety Report 15010166 (Version 3)
Quarter: 2018Q4

REPORT INFORMATION
  Report Type: Spontaneous
  Country: US (occurrence: US)
  Receive Date: 20180614
  Receipt Date: 20181017
  Transmission Date: 20190204
  Serious: Yes (Hospitalization)
  Sender: FDA-Public Use
  Company Number: US-LUNDBECK-DKLU2050138

PATIENT
  Age: 71 Year
  Sex: Male

DRUGS (1)
  1. NORTHERA [Suspect]
     Active Substance: DROXIDOPA
     Indication: ORTHOSTATIC HYPOTENSION
     Route: 048
     Dates: start: 20180308

REACTIONS (2)
  - Lung infection [Not Recovered/Not Resolved]
  - Lung operation [Not Recovered/Not Resolved]

NARRATIVE: CASE EVENT DATE: 201805
